FAERS Safety Report 11051186 (Version 1)
Quarter: 2015Q2

REPORT INFORMATION
  Report Type: Spontaneous
  Country: ES (occurrence: ES)
  Receive Date: 20150421
  Receipt Date: 20150421
  Transmission Date: 20150821
  Serious: Yes (Other)
  Sender: FDA-Public Use
  Company Number: ES-BRACCO-001142

PATIENT
  Age: 52 Year
  Sex: Male

DRUGS (5)
  1. IOPAMIRO [Suspect]
     Active Substance: IOPAMIDOL
     Indication: ANEURYSM REPAIR
     Dosage: DOSE: 120-130 ML.
     Route: 013
     Dates: start: 20150224, end: 20150224
  2. ACETYLSALICYLIC ACID [Concomitant]
     Active Substance: ASPIRIN
     Route: 048
  3. PREGABALINA [Concomitant]
     Active Substance: PREGABALIN
     Route: 048
  4. AMLODIPINE [Concomitant]
     Active Substance: AMLODIPINE BESYLATE
     Route: 048
  5. CLOPIDOGREL [Concomitant]
     Active Substance: CLOPIDOGREL BISULFATE
     Route: 048

REACTIONS (1)
  - Hemianopia homonymous [Recovered/Resolved]

NARRATIVE: CASE EVENT DATE: 20150224
